FAERS Safety Report 23483814 (Version 1)
Quarter: 2024Q1

REPORT INFORMATION
  Report Type: Spontaneous
  Country: IR (occurrence: IR)
  Receive Date: 20240205
  Receipt Date: 20240205
  Transmission Date: 20240410
  Serious: Yes (Other)
  Sender: FDA-Public Use
  Company Number: IR-002147023-NVSC2024IR022201

PATIENT
  Age: 22 Year
  Sex: Female

DRUGS (2)
  1. LETROZOLE [Suspect]
     Active Substance: LETROZOLE
     Indication: Product used for unknown indication
     Dosage: 2.5 MG (RECEIVED ONE TABLET OF LETROZOLE FOR 10?DAYS)
     Route: 048
  2. HUMAN CHORIONIC GONADOTROPIN [Suspect]
     Active Substance: GONADOTROPHIN, CHORIONIC
     Indication: Product used for unknown indication
     Dosage: INJECTED ONE DOSE OF CHORIONIC-GONADOTROPIN
     Route: 058

REACTIONS (3)
  - Ectopic pregnancy [Recovered/Resolved]
  - Maternal exposure timing unspecified [Unknown]
  - Product administration error [Unknown]
